FAERS Safety Report 5276508-6 (Version None)
Quarter: 2007Q1

REPORT INFORMATION
  Report Type: 
  Country: None (occurrence: None)
  Receive Date: 20061213
  Receipt Date: 20040123
  Transmission Date: 20070707
  Serious: No
  Sender: FDA-Public Use
  Company Number: 2003UW11236

PATIENT
  Age: 49 Year
  Sex: Female

DRUGS (6)
  1. SEROQUEL [Suspect]
     Dosage: 100 MG HS PO
     Route: 048
     Dates: start: 20030101
  2. ALBUTEROL [Concomitant]
  3. FEXOFENADINE [Concomitant]
  4. VENLAFAXINE HCL [Concomitant]
  5. RISPERDAL [Concomitant]
  6. CITALOPRAM HYDROBROMIDE [Concomitant]

REACTIONS (1)
  - CATARACT [None]
